FAERS Safety Report 23837895 (Version 1)
Quarter: 2024Q2

REPORT INFORMATION
  Report Type: Spontaneous
  Country: DE (occurrence: DE)
  Receive Date: 20240509
  Receipt Date: 20240509
  Transmission Date: 20240715
  Serious: Yes (Other)
  Sender: FDA-Public Use
  Company Number: DE-009507513-2405DEU001704

PATIENT
  Age: 3 Month

DRUGS (2)
  1. POSACONAZOLE [Suspect]
     Active Substance: POSACONAZOLE
     Indication: Prophylaxis
     Dosage: LOADING DOSE OF 2X 6MG/KG ON THE 1ST DAY
     Route: 042
  2. POSACONAZOLE [Suspect]
     Active Substance: POSACONAZOLE
     Dosage: 1X6MG/KG DAILY

REACTIONS (4)
  - Hepatic vein occlusion [Unknown]
  - Renal failure [Unknown]
  - Drug level increased [Recovering/Resolving]
  - Off label use [Unknown]
